FAERS Safety Report 5909569-9 (Version None)
Quarter: 2008Q4

REPORT INFORMATION
  Report Type: 
  Country: None (occurrence: None)
  Receive Date: 20081002
  Receipt Date: 20080925
  Transmission Date: 20090506
  Serious: Yes (Hospitalization, Other)
  Sender: FDA-Public Use
  Company Number: 2008SP019727

PATIENT
  Age: 49 Year
  Sex: Male

DRUGS (2)
  1. PEG-INTRON [Suspect]
     Indication: HEPATITIS C
     Dates: start: 20080715
  2. RIBAVIRIN [Suspect]
     Indication: HEPATITIS C
     Dosage: ;PO
     Route: 048
     Dates: start: 20080715

REACTIONS (10)
  - ANGER [None]
  - ANXIETY [None]
  - BACK PAIN [None]
  - DEHYDRATION [None]
  - DIARRHOEA [None]
  - IRRITABILITY [None]
  - LOSS OF CONSCIOUSNESS [None]
  - NAUSEA [None]
  - PULSE ABSENT [None]
  - RESPIRATORY ARREST [None]
